FAERS Safety Report 19953169 (Version 1)
Quarter: 2021Q4

REPORT INFORMATION
  Report Type: Spontaneous
  Country: US (occurrence: US)
  Receive Date: 20211013
  Receipt Date: 20211013
  Transmission Date: 20220303
  Serious: Yes (Other)
  Sender: FDA-Public Use
  Company Number: US-MYLANLABS-2021M1072044

PATIENT
  Sex: Female

DRUGS (6)
  1. PROPRANOLOL [Suspect]
     Active Substance: PROPRANOLOL HYDROCHLORIDE
     Indication: Osmotic demyelination syndrome
     Dosage: UNK
     Route: 065
  2. PROPRANOLOL [Suspect]
     Active Substance: PROPRANOLOL HYDROCHLORIDE
     Indication: Tremor
  3. CARBIDOPA\LEVODOPA [Suspect]
     Active Substance: CARBIDOPA\LEVODOPA
     Indication: Osmotic demyelination syndrome
     Dosage: UNK
     Route: 065
  4. CARBIDOPA\LEVODOPA [Suspect]
     Active Substance: CARBIDOPA\LEVODOPA
     Indication: Tremor
  5. PRIMIDONE [Suspect]
     Active Substance: PRIMIDONE
     Indication: Osmotic demyelination syndrome
     Route: 065
  6. PRIMIDONE [Suspect]
     Active Substance: PRIMIDONE
     Indication: Tremor

REACTIONS (2)
  - Drug ineffective [Unknown]
  - Off label use [Unknown]
